FAERS Safety Report 16008961 (Version 5)
Quarter: 2021Q2

REPORT INFORMATION
  Report Type: Spontaneous
  Country: JP (occurrence: JP)
  Receive Date: 20190224
  Receipt Date: 20210510
  Transmission Date: 20210716
  Serious: Yes (Death, Life-Threatening, Hospitalization, Other)
  Sender: FDA-Public Use
  Company Number: JP-009507513-1902JPN001666J

PATIENT
  Age: 85 Year
  Sex: Female
  Weight: 31 kg

DRUGS (7)
  1. TAKECAB [Concomitant]
     Active Substance: VONOPRAZAN FUMARATE
     Indication: GASTRIC ULCER
     Dosage: 10 MILLIGRAM, QD
     Route: 048
  2. HALCION [Concomitant]
     Active Substance: TRIAZOLAM
     Indication: INSOMNIA
     Dosage: 0.25 MILLIGRAM, QD
     Route: 048
  3. BELSOMRA [Concomitant]
     Active Substance: SUVOREXANT
     Indication: INSOMNIA
     Dosage: 15 MILLIGRAM, QD
     Route: 048
  4. AMITIZA [Concomitant]
     Active Substance: LUBIPROSTONE
     Indication: CONSTIPATION
     Dosage: 24 MICROGRAM, BID
     Route: 048
  5. KEYTRUDA [Suspect]
     Active Substance: PEMBROLIZUMAB
     Indication: TRANSITIONAL CELL CANCER OF THE RENAL PELVIS AND URETER
     Dosage: 200 MILLIGRAM, Q3W
     Route: 041
     Dates: start: 20181106, end: 2019
  6. KEYTRUDA [Suspect]
     Active Substance: PEMBROLIZUMAB
     Dosage: 200 MILLIGRAM, Q3W
     Route: 041
     Dates: start: 2019, end: 20190322
  7. SENNOSIDE [Concomitant]
     Active Substance: SENNOSIDES
     Indication: CONSTIPATION
     Dosage: 24 MILLIGRAM, QD
     Route: 048

REACTIONS (8)
  - Death [Fatal]
  - Immune-mediated cholangitis [Recovering/Resolving]
  - Malignant neoplasm progression [Unknown]
  - Immune-mediated hypothyroidism [Recovering/Resolving]
  - Anaemia [Unknown]
  - Substance-induced psychotic disorder [Unknown]
  - Cardiac failure acute [Recovering/Resolving]
  - Spinal compression fracture [Recovering/Resolving]

NARRATIVE: CASE EVENT DATE: 20181109
